FAERS Safety Report 17239200 (Version 2)
Quarter: 2021Q1

REPORT INFORMATION
  Report Type: Spontaneous
  Country: US (occurrence: US)
  Receive Date: 20200106
  Receipt Date: 20210106
  Transmission Date: 20210419
  Serious: Yes (Other)
  Sender: FDA-Public Use
  Company Number: US-ABBVIE-19K-163-2839515-00

PATIENT
  Sex: Male
  Weight: 72.85 kg

DRUGS (37)
  1. COMPAZINE [Concomitant]
     Active Substance: PROCHLORPERAZINE MALEATE
     Indication: PRODUCT USED FOR UNKNOWN INDICATION
     Dosage: PER SIX HOURS AS NEEDED
     Route: 048
     Dates: start: 20190806
  2. CHROMIUM PICOLINATE [Concomitant]
     Active Substance: CHROMIUM PICOLINATE
     Indication: PRODUCT USED FOR UNKNOWN INDICATION
     Route: 048
     Dates: start: 20190509, end: 20190626
  3. LYSINE [Concomitant]
     Active Substance: LYSINE
     Indication: PRODUCT USED FOR UNKNOWN INDICATION
     Route: 048
     Dates: start: 20190509, end: 20190626
  4. KLOR?CON M20 [Concomitant]
     Active Substance: POTASSIUM CHLORIDE
     Indication: PRODUCT USED FOR UNKNOWN INDICATION
     Route: 048
     Dates: start: 20190509, end: 20190626
  5. UBIDECARENONE. [Concomitant]
     Active Substance: UBIDECARENONE
     Indication: PRODUCT USED FOR UNKNOWN INDICATION
     Route: 048
     Dates: start: 20190509, end: 20190626
  6. VIDAZA [Suspect]
     Active Substance: AZACITIDINE
     Dosage: C2DI VIDAZA(7 DAYS)+VENETOCLAX
     Route: 042
     Dates: start: 20190903, end: 2019
  7. VITAMIN B12 [Concomitant]
     Active Substance: CYANOCOBALAMIN
     Indication: PRODUCT USED FOR UNKNOWN INDICATION
     Route: 048
     Dates: start: 20190509, end: 20190626
  8. ALOE VERA [Concomitant]
     Active Substance: ALOE VERA LEAF
     Indication: PRODUCT USED FOR UNKNOWN INDICATION
     Route: 048
     Dates: start: 20190509, end: 20190626
  9. ALPHA LIPOIC ACID [Concomitant]
     Active Substance: .ALPHA.-LIPOIC ACID
     Indication: PRODUCT USED FOR UNKNOWN INDICATION
     Route: 048
     Dates: start: 20190509, end: 20190626
  10. VENCLEXTA [Suspect]
     Active Substance: VENETOCLAX
     Dosage: C2DI VIDAZA(7 DAYS)+VENETOCLAX?TAKE 1 TABLET BY MOUTH ON DAY 1
     Route: 048
     Dates: start: 20190903, end: 2019
  11. VENOFER [Concomitant]
     Active Substance: IRON SUCROSE
     Route: 042
     Dates: start: 201606
  12. KOMBIGLYZE XR [Concomitant]
     Active Substance: METFORMIN HYDROCHLORIDE\SAXAGLIPTIN HYDROCHLORIDE
     Indication: PRODUCT USED FOR UNKNOWN INDICATION
     Dosage: DAILY: LAST TAKEN: UNKNOWN
     Route: 048
     Dates: start: 20190801
  13. AMARYL [Concomitant]
     Active Substance: GLIMEPIRIDE
     Indication: PRODUCT USED FOR UNKNOWN INDICATION
     Route: 048
     Dates: start: 20151203, end: 20190626
  14. JANUVIA [Concomitant]
     Active Substance: SITAGLIPTIN PHOSPHATE
     Indication: PRODUCT USED FOR UNKNOWN INDICATION
     Route: 048
     Dates: start: 20190509, end: 20190626
  15. VIDAZA [Suspect]
     Active Substance: AZACITIDINE
     Indication: REFRACTORY ANAEMIA WITH AN EXCESS OF BLASTS
     Dosage: 75 MG/M2
     Route: 042
     Dates: start: 20150819, end: 20190719
  16. VIDAZA [Suspect]
     Active Substance: AZACITIDINE
     Dosage: C1DI VIDAZA(7 DAYS)+VENETOCLAX
     Route: 042
     Dates: start: 20190801, end: 2019
  17. VIDAZA [Suspect]
     Active Substance: AZACITIDINE
     Dosage: C3DI VIDAZA(7 DAYS)+VENETOCLAX
     Route: 042
     Dates: start: 20191001, end: 201910
  18. IRON [Concomitant]
     Active Substance: IRON
     Indication: PRODUCT USED FOR UNKNOWN INDICATION
     Route: 048
     Dates: start: 20190509, end: 20190626
  19. ZYLOPRIM [Concomitant]
     Active Substance: ALLOPURINOL
     Indication: PRODUCT USED FOR UNKNOWN INDICATION
     Route: 048
     Dates: start: 20151203, end: 20190626
  20. LEVOTHYROXINE SODIUM. [Concomitant]
     Active Substance: LEVOTHYROXINE SODIUM
     Indication: PRODUCT USED FOR UNKNOWN INDICATION
     Route: 048
     Dates: start: 20190509, end: 20190626
  21. VENCLEXTA [Suspect]
     Active Substance: VENETOCLAX
     Indication: REFRACTORY ANAEMIA WITH AN EXCESS OF BLASTS
     Dosage: C1DI VIDAZA(7 DAYS)+VENETOCLAX
     Route: 048
     Dates: start: 20190801, end: 2019
  22. VENCLEXTA [Suspect]
     Active Substance: VENETOCLAX
     Dosage: C4DI VIDAZA(7 DAYS)+VENETOCLAX?TAKE 4 TABLET(S) BY MOUTH EVERY DAY THEREAFTER
     Route: 048
     Dates: start: 20191028
  23. METFORMIN [Suspect]
     Active Substance: METFORMIN HYDROCHLORIDE
     Indication: PRODUCT USED FOR UNKNOWN INDICATION
     Route: 065
  24. LASIX [Concomitant]
     Active Substance: FUROSEMIDE
     Indication: PRODUCT USED FOR UNKNOWN INDICATION
     Route: 048
     Dates: start: 20190509, end: 20190626
  25. LOSARTAN POTASSIUM. [Concomitant]
     Active Substance: LOSARTAN POTASSIUM
     Indication: PRODUCT USED FOR UNKNOWN INDICATION
     Route: 048
     Dates: start: 20190509, end: 20190526
  26. VENOFER [Concomitant]
     Active Substance: IRON SUCROSE
     Indication: PRODUCT USED FOR UNKNOWN INDICATION
     Route: 042
     Dates: start: 201603
  27. FERAHEME [Concomitant]
     Active Substance: FERUMOXYTOL NON-STOICHIOMETRIC MAGNETITE
     Indication: PRODUCT USED FOR UNKNOWN INDICATION
     Route: 042
     Dates: start: 20180522
  28. FOLATE [Concomitant]
     Active Substance: FOLATE SODIUM
     Indication: PRODUCT USED FOR UNKNOWN INDICATION
     Dosage: 3?4 PO DAILY
     Route: 048
     Dates: start: 20190509, end: 20190626
  29. AMLODIPINE BESYLATE. [Concomitant]
     Active Substance: AMLODIPINE BESYLATE
     Indication: PRODUCT USED FOR UNKNOWN INDICATION
     Route: 048
     Dates: start: 20190509, end: 20190626
  30. METOPROLOL TARTRATE. [Concomitant]
     Active Substance: METOPROLOL TARTRATE
     Indication: PRODUCT USED FOR UNKNOWN INDICATION
     Route: 048
     Dates: start: 20190509, end: 20190626
  31. VENCLEXTA [Suspect]
     Active Substance: VENETOCLAX
     Dosage: C3DI VIDAZA(7 DAYS)+VENETOCLAX?TAKE 2 TABLET(S) BY MOUTH ON DAY 2
     Route: 048
     Dates: start: 20191001, end: 201910
  32. VIDAZA [Suspect]
     Active Substance: AZACITIDINE
     Dosage: 75 MG/M2?7 DAYS+VENETOCLAX COMPASSIONATE USE)
     Route: 042
     Dates: start: 20190509, end: 2019
  33. VIDAZA [Suspect]
     Active Substance: AZACITIDINE
     Dosage: C4DI VIDAZA(7 DAYS)+ VENETOCLAX
     Route: 042
     Dates: start: 20191028
  34. VENOFER [Concomitant]
     Active Substance: IRON SUCROSE
     Route: 042
     Dates: start: 201604
  35. CINNAMON BARK [Concomitant]
     Active Substance: CINNAMON\HERBALS
     Indication: PRODUCT USED FOR UNKNOWN INDICATION
     Route: 048
     Dates: start: 20190509, end: 20190626
  36. MILK THISTLE [Concomitant]
     Active Substance: DIETARY SUPPLEMENT\HERBALS\MILK THISTLE
     Indication: PRODUCT USED FOR UNKNOWN INDICATION
     Route: 048
     Dates: start: 20190509, end: 20190626
  37. COENZYME Q10 [Concomitant]
     Active Substance: DIETARY SUPPLEMENT\UBIDECARENONE
     Indication: PRODUCT USED FOR UNKNOWN INDICATION

REACTIONS (11)
  - Deformity [Unknown]
  - Cyanosis [Unknown]
  - Leukopenia [Unknown]
  - Off label use [Not Recovered/Not Resolved]
  - Oedema peripheral [Unknown]
  - Diarrhoea [Recovered/Resolved]
  - Nasal congestion [Unknown]
  - Fatigue [Recovering/Resolving]
  - Breast mass [Recovering/Resolving]
  - Constipation [Recovering/Resolving]
  - Decreased appetite [Recovering/Resolving]
